FAERS Safety Report 9480039 (Version 1)
Quarter: 2013Q3

REPORT INFORMATION
  Report Type: Spontaneous
  Country: US (occurrence: US)
  Receive Date: 20130828
  Receipt Date: 20130828
  Transmission Date: 20140515
  Serious: Yes (Other)
  Sender: FDA-Public Use
  Company Number: US-AMGEN-KDL058641

PATIENT
  Age: 77 Year
  Sex: Female

DRUGS (3)
  1. ENBREL [Suspect]
     Indication: RHEUMATOID ARTHRITIS
     Dosage: 25 MG, 2 TIMES/WK
     Route: 058
     Dates: start: 20000901
  2. METHOTREXATE [Concomitant]
  3. RADIATION THERAPY [Concomitant]
     Dosage: UNK UNK, UNK
     Dates: start: 200203, end: 200206

REACTIONS (1)
  - Breast cancer [Unknown]
